FAERS Safety Report 4749178-0 (Version None)
Quarter: 2005Q3

REPORT INFORMATION
  Report Type: 
  Country: None (occurrence: None)
  Receive Date: 20050817
  Receipt Date: 20050815
  Transmission Date: 20060218
  Serious: Yes (Death)
  Sender: FDA-Public Use
  Company Number: 200510513BVD

PATIENT
  Age: 68 Year
  Sex: Male

DRUGS (6)
  1. AVELOX [Suspect]
     Indication: PNEUMONIA ASPIRATION
     Dosage: INTRAVENOUS
     Route: 042
  2. MARCUMAR [Concomitant]
  3. BAYOTENSIN [Concomitant]
  4. ENABETA [Concomitant]
  5. TIM-OPHTAL [Concomitant]
  6. PANTOZOL [Concomitant]

REACTIONS (22)
  - ARRHYTHMIA [None]
  - ASPIRATION [None]
  - CARDIOVASCULAR DISORDER [None]
  - DECUBITUS ULCER [None]
  - DEHYDRATION [None]
  - DIARRHOEA [None]
  - DUODENAL ULCER [None]
  - EOSINOPHILIA [None]
  - FLUID INTAKE REDUCED [None]
  - GENERAL PHYSICAL HEALTH DETERIORATION [None]
  - HYPONATRAEMIA [None]
  - KYPHOSIS [None]
  - OEDEMA PERIPHERAL [None]
  - PLEURAL EFFUSION [None]
  - PULMONARY EMBOLISM [None]
  - PULSE ABSENT [None]
  - REFLUX OESOPHAGITIS [None]
  - RESPIRATORY FAILURE [None]
  - SOMNOLENCE [None]
  - THROMBOCYTHAEMIA [None]
  - VARICOSE VEIN [None]
  - VOMITING [None]
